FAERS Safety Report 7775777-8 (Version None)
Quarter: 2011Q3

REPORT INFORMATION
  Report Type: 
  Country: None (occurrence: None)
  Receive Date: 20110921
  Receipt Date: 20110531
  Transmission Date: 20111222
  Serious: Yes (Hospitalization)
  Sender: FDA-Public Use
  Company Number: UTC-007560

PATIENT
  Age: 50 Year
  Sex: Female
  Weight: 70.4 kg

DRUGS (3)
  1. TYVASO [Suspect]
     Indication: SYSTEMIC SCLEROSIS
     Dosage: 144 MCG (36 MCG, 4 IN 1 D), INHALATION
     Route: 055
     Dates: start: 20100508
  2. COUMADIN [Concomitant]
  3. TRACLEER [Concomitant]

REACTIONS (1)
  - CHEST PAIN [None]
